FAERS Safety Report 5895014-9 (Version None)
Quarter: 2008Q3

REPORT INFORMATION
  Report Type: 
  Country: None (occurrence: None)
  Receive Date: 20080924
  Receipt Date: 20080911
  Transmission Date: 20090109
  Serious: Yes (Other)
  Sender: FDA-Public Use
  Company Number: US-PFIZER INC-2008077358

PATIENT
  Sex: Female

DRUGS (2)
  1. ZYVOX [Suspect]
  2. BENADRYL [Suspect]

REACTIONS (4)
  - INSOMNIA [None]
  - MUSCLE SPASMS [None]
  - OEDEMA MOUTH [None]
  - SWELLING FACE [None]
